FAERS Safety Report 13187654 (Version 4)
Quarter: 2017Q4

REPORT INFORMATION
  Report Type: Spontaneous
  Country: ID (occurrence: ID)
  Receive Date: 20170206
  Receipt Date: 20171201
  Transmission Date: 20180320
  Serious: Yes (Life-Threatening, Hospitalization, Other)
  Sender: FDA-Public Use
  Company Number: ID-SUN PHARMACEUTICAL INDUSTRIES LTD-2017R1-132635

PATIENT
  Age: 35 Year
  Sex: Male

DRUGS (4)
  1. DOXORUBICIN [Suspect]
     Active Substance: DOXORUBICIN
     Indication: METASTASES TO LUNG
     Dosage: SECOND CYCLE
  2. DACARBAZINE. [Suspect]
     Active Substance: DACARBAZINE
     Indication: RHABDOMYOSARCOMA
     Dosage: SECOND CYCLE
  3. MESNA. [Suspect]
     Active Substance: MESNA
     Indication: RHABDOMYOSARCOMA
     Dosage: SECOND CYCLE
  4. IFOSFAMIDE. [Suspect]
     Active Substance: IFOSFAMIDE
     Indication: METASTASES TO LUNG
     Dosage: SECOND CYCLE

REACTIONS (1)
  - Pneumothorax spontaneous [Recovered/Resolved]
